FAERS Safety Report 26001292 (Version 2)
Quarter: 2025Q4

REPORT INFORMATION
  Report Type: Report from Study
  Country: TR (occurrence: TR)
  Receive Date: 20251105
  Receipt Date: 20251117
  Transmission Date: 20260118
  Serious: Yes (Hospitalization)
  Sender: ALEXION PHARMACEUTICALS
  Company Number: TR-ASTRAZENECA-202510MES030609TR

PATIENT
  Sex: Female
  Weight: 90 kg

DRUGS (2)
  1. SOLIRIS [Suspect]
     Active Substance: ECULIZUMAB
     Indication: Myasthenia gravis
     Dosage: 900 MILLIGRAM, QW
     Dates: start: 20250515
  2. SOLIRIS [Suspect]
     Active Substance: ECULIZUMAB
     Dosage: 1200 MILLIGRAM, Q2W

REACTIONS (2)
  - Myasthenia gravis crisis [Unknown]
  - Inappropriate schedule of product administration [Unknown]
